FAERS Safety Report 15599665 (Version 1)
Quarter: 2018Q4

REPORT INFORMATION
  Report Type: Spontaneous
  Country: US (occurrence: US)
  Receive Date: 20181108
  Receipt Date: 20181108
  Transmission Date: 20190205
  Serious: Yes (Hospitalization)
  Sender: FDA-Public Use
  Company Number: None

PATIENT
  Age: 1 Day
  Sex: Female
  Weight: 3.53 kg

DRUGS (1)
  1. KRATOM TEA [Suspect]
     Active Substance: MITRAGYNINE\HERBALS
     Indication: DEPRESSION
     Route: 048
     Dates: start: 20171101, end: 20180708

REACTIONS (2)
  - Maternal drugs affecting foetus [None]
  - Drug withdrawal syndrome neonatal [None]

NARRATIVE: CASE EVENT DATE: 20180709
